FAERS Safety Report 4549273-5 (Version None)
Quarter: 2005Q1

REPORT INFORMATION
  Report Type: 
  Country: None (occurrence: None)
  Receive Date: 20050110
  Receipt Date: 20050110
  Transmission Date: 20050727
  Serious: Yes (Other)
  Sender: FDA-Public Use
  Company Number: None

PATIENT
  Sex: Male

DRUGS (2)
  1. DEPAKOTE [Suspect]
     Indication: MENTAL DISORDER
     Dosage: 250 MG BID ORAL; 250MG Q AM + 375MG Q HS
     Route: 048
     Dates: start: 20020619, end: 20040722
  2. . [Concomitant]

REACTIONS (1)
  - BLOOD CHOLESTEROL INCREASED [None]
